FAERS Safety Report 6087197-5 (Version None)
Quarter: 2009Q1

REPORT INFORMATION
  Report Type: 
  Country: None (occurrence: None)
  Receive Date: 20090223
  Receipt Date: 20090210
  Transmission Date: 20090719
  Serious: Yes (Hospitalization)
  Sender: FDA-Public Use
  Company Number: US-MERCK-0801USA04029

PATIENT
  Age: 74 Year
  Sex: Female
  Weight: 86 kg

DRUGS (1)
  1. FOSAMAX [Suspect]
     Route: 048
     Dates: start: 20020601, end: 20040301

REACTIONS (24)
  - ABSCESS JAW [None]
  - ABSCESS ORAL [None]
  - ANXIETY [None]
  - DENTAL CARIES [None]
  - DEPRESSION [None]
  - DRUG HYPERSENSITIVITY [None]
  - DRY MOUTH [None]
  - DYSPHAGIA [None]
  - EDENTULOUS [None]
  - FISTULA [None]
  - GINGIVAL BLEEDING [None]
  - GINGIVAL DISORDER [None]
  - IMPAIRED HEALING [None]
  - LATEX ALLERGY [None]
  - METASTASES TO BONE [None]
  - NAUSEA [None]
  - NECROSIS [None]
  - ORAL INFECTION [None]
  - ORAL PAPILLOMA [None]
  - OSTEOMYELITIS [None]
  - OSTEONECROSIS [None]
  - PERIODONTAL DISEASE [None]
  - SKIN ULCER [None]
  - VOMITING [None]
